FAERS Safety Report 7355358-0 (Version None)
Quarter: 2011Q1

REPORT INFORMATION
  Report Type: 
  Country: None (occurrence: None)
  Receive Date: 20110316
  Receipt Date: 20110310
  Transmission Date: 20110831
  Serious: Yes (Hospitalization)
  Sender: FDA-Public Use
  Company Number: NL-MEDIMMUNE-MEDI-0012901

PATIENT
  Sex: Male
  Weight: 4.65 kg

DRUGS (2)
  1. SYNAGIS [Suspect]
     Route: 030
     Dates: start: 20101217, end: 20101217
  2. SYNAGIS [Suspect]
     Route: 030
     Dates: start: 20110210

REACTIONS (4)
  - PYREXIA [None]
  - ESCHERICHIA INFECTION [None]
  - CRYING [None]
  - OLIGODIPSIA [None]
